APPROVED DRUG PRODUCT: FOLVITE
Active Ingredient: FOLIC ACID
Strength: 5MG/ML **Federal Register determination that product was not discontinued or withdrawn for safety or effectiveness reasons**
Dosage Form/Route: INJECTABLE;INJECTION
Application: N005897 | Product #008
Applicant: WYETH PHARMACEUTICALS INC
Approved: Approved Prior to Jan 1, 1982 | RLD: Yes | RS: No | Type: DISCN